FAERS Safety Report 7596023-4 (Version None)
Quarter: 2011Q3

REPORT INFORMATION
  Report Type: 
  Country: None (occurrence: None)
  Receive Date: 20110707
  Receipt Date: 20110628
  Transmission Date: 20111222
  Serious: Yes (Hospitalization, Other)
  Sender: FDA-Public Use
  Company Number: PHHY2011US57567

PATIENT
  Sex: Male

DRUGS (14)
  1. TOPAMAX [Concomitant]
  2. TOBI [Suspect]
     Dosage: 300 MG, BID, 28 DAYS ON 28 DAYS OFF
     Dates: start: 20101201
  3. POTASSIUM CHLORIDE [Concomitant]
  4. ADVAIR DISKUS 100/50 [Concomitant]
  5. PHOSPHA [Concomitant]
  6. ATROVENT [Concomitant]
  7. PHENOBARBITAL TAB [Concomitant]
  8. ATIVAN [Concomitant]
  9. DIURIL [Concomitant]
  10. LANSOPRAZOLE [Concomitant]
  11. ALBUTEROL SULFATE AUTOHALER [Concomitant]
  12. MAGONATE [Concomitant]
  13. CYTRA-3 [Concomitant]
  14. CALCINASE [Concomitant]

REACTIONS (2)
  - PAIN [None]
  - MUSCLE TWITCHING [None]
